FAERS Safety Report 9979796 (Version 1)
Quarter: 2014Q1

REPORT INFORMATION
  Report Type: Spontaneous
  Country: US (occurrence: US)
  Receive Date: 20140306
  Receipt Date: 20140306
  Transmission Date: 20141002
  Serious: No
  Sender: FDA-Public Use
  Company Number: US-ABBVIE-13P-163-1170504-00

PATIENT
  Age: 70 Year
  Sex: Male
  Weight: 108.96 kg

DRUGS (9)
  1. HUMIRA [Suspect]
     Indication: PSORIASIS
     Dates: start: 2010, end: 201303
  2. HUMIRA [Suspect]
     Dates: start: 201303, end: 201304
  3. HUMIRA [Suspect]
     Dates: start: 201305, end: 201309
  4. HUMIRA [Suspect]
     Dates: start: 201310, end: 201311
  5. HUMIRA [Suspect]
     Dates: start: 201311
  6. MULTIVITAMIN [Concomitant]
     Indication: SUPPLEMENTATION THERAPY
  7. VITAMIN C [Concomitant]
     Indication: SUPPLEMENTATION THERAPY
  8. FISH OIL [Concomitant]
     Indication: SUPPLEMENTATION THERAPY
  9. VITAMIN D [Concomitant]
     Indication: SUPPLEMENTATION THERAPY

REACTIONS (3)
  - Prostatic specific antigen increased [Not Recovered/Not Resolved]
  - Psoriasis [Recovered/Resolved]
  - Psoriasis [Recovered/Resolved]
